FAERS Safety Report 13562633 (Version 1)
Quarter: 2017Q2

REPORT INFORMATION
  Report Type: Spontaneous
  Country: US (occurrence: US)
  Receive Date: 20170518
  Receipt Date: 20170518
  Transmission Date: 20170830
  Serious: No
  Sender: FDA-Public Use
  Company Number: None

PATIENT
  Age: 52 Year
  Sex: Male

DRUGS (1)
  1. IOPROMIDE [Suspect]
     Active Substance: IOPROMIDE
     Indication: SCAN WITH CONTRAST
     Dates: start: 20170422, end: 20170422

REACTIONS (3)
  - Anaphylactic reaction [None]
  - Angioedema [None]
  - Rash [None]

NARRATIVE: CASE EVENT DATE: 20170422
